FAERS Safety Report 25108514 (Version 4)
Quarter: 2025Q2

REPORT INFORMATION
  Report Type: Spontaneous
  Country: JP (occurrence: JP)
  Receive Date: 20250322
  Receipt Date: 20250518
  Transmission Date: 20250716
  Serious: Yes (Death, Hospitalization, Other)
  Sender: ABBVIE
  Company Number: JP-ABBVIE-6192148

PATIENT
  Age: 70 Year
  Sex: Male

DRUGS (1)
  1. VYALEV [Suspect]
     Active Substance: FOSCARBIDOPA\FOSLEVODOPA
     Indication: Product used for unknown indication
     Route: 058
     Dates: start: 20241023, end: 202503

REACTIONS (4)
  - Urosepsis [Fatal]
  - Escherichia urinary tract infection [Fatal]
  - Depressed level of consciousness [Unknown]
  - Hypothermia [Unknown]

NARRATIVE: CASE EVENT DATE: 20250308
